FAERS Safety Report 15023486 (Version 3)
Quarter: 2018Q3

REPORT INFORMATION
  Report Type: Report from Study
  Country: CA (occurrence: CA)
  Receive Date: 20180618
  Receipt Date: 20180827
  Transmission Date: 20181010
  Serious: Yes (Death, Hospitalization)
  Sender: FDA-Public Use
  Company Number: CA-ROCHE-1947612

PATIENT
  Age: 50 Year
  Sex: Female
  Weight: 88.6 kg

DRUGS (6)
  1. ACTEMRA [Suspect]
     Active Substance: TOCILIZUMAB
     Indication: RHEUMATOID ARTHRITIS
     Route: 042
     Dates: start: 20160106, end: 20160206
  2. TECTA [Concomitant]
     Active Substance: PANTOPRAZOLE MAGNESIUM
     Route: 065
  3. ACTEMRA [Suspect]
     Active Substance: TOCILIZUMAB
     Route: 042
     Dates: start: 20180206
  4. TELMISARTAN. [Concomitant]
     Active Substance: TELMISARTAN
     Route: 065
  5. AMLODIPINE [Concomitant]
     Active Substance: AMLODIPINE BESYLATE
     Route: 065
  6. ORENCIA [Concomitant]
     Active Substance: ABATACEPT

REACTIONS (6)
  - Death [Fatal]
  - Gastrointestinal haemorrhage [Recovering/Resolving]
  - Hepatic enzyme increased [Unknown]
  - Weight decreased [Unknown]
  - Hepatic cirrhosis [Not Recovered/Not Resolved]
  - Haemoglobin decreased [Not Recovered/Not Resolved]

NARRATIVE: CASE EVENT DATE: 20180816
